FAERS Safety Report 7204439-0 (Version None)
Quarter: 2010Q4

REPORT INFORMATION
  Report Type: 
  Country: None (occurrence: None)
  Receive Date: 20101230
  Receipt Date: 20101221
  Transmission Date: 20110411
  Serious: Yes (Life-Threatening, Hospitalization)
  Sender: FDA-Public Use
  Company Number: JP-AMGEN-JPNCT2010007481

PATIENT

DRUGS (14)
  1. PANITUMUMAB [Suspect]
     Indication: COLORECTAL CANCER
     Dosage: 470 MG, Q2WK
     Route: 041
     Dates: start: 20100702, end: 20101126
  2. PARIET [Concomitant]
     Route: 048
  3. MINOMYCIN [Concomitant]
     Route: 048
  4. IRINOTECAN HYDROCHLORIDE [Concomitant]
     Indication: COLORECTAL CANCER
     Route: 041
     Dates: start: 20100702
  5. IRINOTECAN HYDROCHLORIDE [Concomitant]
     Route: 041
     Dates: start: 20100806, end: 20100806
  6. FLUOROURACIL [Concomitant]
     Indication: COLORECTAL CANCER
     Route: 040
     Dates: start: 20100702
  7. FLUOROURACIL [Concomitant]
     Route: 041
     Dates: start: 20100702
  8. FLUOROURACIL [Concomitant]
     Route: 040
     Dates: start: 20100806, end: 20100806
  9. FLUOROURACIL [Concomitant]
     Route: 041
     Dates: start: 20100806, end: 20100806
  10. CALCIUM LEVOFOLINATE [Concomitant]
     Indication: COLORECTAL CANCER
     Route: 041
     Dates: start: 20100702
  11. CALCIUM LEVOFOLINATE [Concomitant]
     Route: 041
     Dates: start: 20100806, end: 20100806
  12. PREDNISOLONE [Concomitant]
     Route: 048
  13. ALLELOCK [Concomitant]
     Route: 048
  14. JUVELA N [Concomitant]
     Route: 048

REACTIONS (1)
  - HYPOMAGNESAEMIA [None]
